FAERS Safety Report 19276346 (Version 4)
Quarter: 2021Q3

REPORT INFORMATION
  Report Type: Spontaneous
  Country: PT (occurrence: PT)
  Receive Date: 20210519
  Receipt Date: 20210706
  Transmission Date: 20211014
  Serious: Yes (Hospitalization, Other)
  Sender: FDA-Public Use
  Company Number: PT-VIIV HEALTHCARE LIMITED-PT2021EME103390

PATIENT
  Sex: Male

DRUGS (3)
  1. TRIUMEQ [Concomitant]
     Active Substance: ABACAVIR SULFATE\DOLUTEGRAVIR SODIUM\LAMIVUDINE
     Indication: PRODUCT USED FOR UNKNOWN INDICATION
     Dosage: UNK
  2. CHLORPROMAZINE. [Concomitant]
     Active Substance: CHLORPROMAZINE
     Indication: HICCUPS
     Dosage: UNK
  3. DOVATO [Suspect]
     Active Substance: DOLUTEGRAVIR SODIUM\LAMIVUDINE
     Indication: PRODUCT USED FOR UNKNOWN INDICATION
     Dosage: UNK
     Dates: start: 2021, end: 202105

REACTIONS (6)
  - Rash [Recovering/Resolving]
  - Pemphigoid [Recovering/Resolving]
  - Purpura [Recovering/Resolving]
  - Allergic reaction to excipient [Recovering/Resolving]
  - Rash vesicular [Recovering/Resolving]
  - Eosinophilia [Recovering/Resolving]

NARRATIVE: CASE EVENT DATE: 202105
